FAERS Safety Report 13924287 (Version 1)
Quarter: 2017Q3

REPORT INFORMATION
  Report Type: Spontaneous
  Country: US (occurrence: US)
  Receive Date: 20170831
  Receipt Date: 20170831
  Transmission Date: 20171127
  Serious: Yes (Life-Threatening, Other)
  Sender: FDA-Public Use
  Company Number: US-JNJFOC-20170824614

PATIENT
  Age: 39 Year
  Sex: Male

DRUGS (3)
  1. LOPERAMIDE HYDROCHLORIDE. [Suspect]
     Active Substance: LOPERAMIDE HYDROCHLORIDE
     Route: 048
  2. LOPERAMIDE HYDROCHLORIDE. [Suspect]
     Active Substance: LOPERAMIDE HYDROCHLORIDE
     Indication: INTENTIONAL PRODUCT MISUSE
     Route: 048
  3. METHYLENEDIOXYMETHAMPHETAMINE [Suspect]
     Active Substance: MIDOMAFETAMINE
     Indication: INTENTIONAL PRODUCT MISUSE
     Route: 048

REACTIONS (7)
  - Muscular weakness [Unknown]
  - Overdose [Unknown]
  - Respiratory depression [Unknown]
  - Intentional product misuse [Unknown]
  - Lethargy [Unknown]
  - Somnolence [Unknown]
  - Confusional state [Unknown]
